FAERS Safety Report 19397495 (Version 1)
Quarter: 2021Q2

REPORT INFORMATION
  Report Type: Spontaneous
  Country: US (occurrence: US)
  Receive Date: 20210609
  Receipt Date: 20210609
  Transmission Date: 20210717
  Serious: Yes (Other)
  Sender: FDA-Public Use
  Company Number: US-JNJFOC-20210611453

PATIENT
  Age: 10 Year
  Sex: Male

DRUGS (1)
  1. REMICADE [Suspect]
     Active Substance: INFLIXIMAB
     Indication: CROHN^S DISEASE
     Route: 042

REACTIONS (4)
  - Cellulitis staphylococcal [Recovered/Resolved]
  - Staphylococcal abscess [Recovered/Resolved]
  - Lymphadenitis bacterial [Recovered/Resolved]
  - Dermatitis psoriasiform [Recovered/Resolved]
